FAERS Safety Report 9896443 (Version 2)
Quarter: 2014Q1

REPORT INFORMATION
  Report Type: Spontaneous
  Country: US (occurrence: US)
  Receive Date: 20140213
  Receipt Date: 20140304
  Transmission Date: 20141002
  Serious: No
  Sender: FDA-Public Use
  Company Number: US-TEVA-462203USA

PATIENT
  Sex: Female
  Weight: 86.26 kg

DRUGS (2)
  1. PROAIR HFA [Suspect]
     Indication: ASTHMA
  2. TYLENOL [Concomitant]
     Indication: HEADACHE

REACTIONS (4)
  - Cough [Recovered/Resolved]
  - Product cleaning inadequate [Recovered/Resolved]
  - Incorrect dose administered [Recovered/Resolved]
  - Product odour abnormal [Recovered/Resolved]
